FAERS Safety Report 6031563-0 (Version None)
Quarter: 2008Q4

REPORT INFORMATION
  Report Type: 
  Country: None (occurrence: None)
  Receive Date: 20081222
  Receipt Date: 20081016
  Transmission Date: 20090506
  Serious: No
  Sender: FDA-Public Use
  Company Number: US-WYE-H06452408

PATIENT
  Age: 42 Year
  Sex: Female
  Weight: 63.56 kg

DRUGS (1)
  1. PRISTIQ [Suspect]
     Indication: ANXIETY
     Dosage: 50 MG 1X PER 1 DAY, ORAL
     Route: 048
     Dates: start: 20081013

REACTIONS (6)
  - ANOREXIA [None]
  - FATIGUE [None]
  - FEELING HOT [None]
  - HEADACHE [None]
  - INSOMNIA [None]
  - NAUSEA [None]
